FAERS Safety Report 7306194-2 (Version None)
Quarter: 2011Q1

REPORT INFORMATION
  Report Type: 
  Country: None (occurrence: None)
  Receive Date: 20110222
  Receipt Date: 20110207
  Transmission Date: 20110831
  Serious: Yes (Other)
  Sender: FDA-Public Use
  Company Number: PHHY2011US09959

PATIENT
  Age: 60 Year
  Sex: Male

DRUGS (1)
  1. WARFARIN [Suspect]
     Indication: PROPHYLAXIS

REACTIONS (5)
  - MARROW HYPERPLASIA [None]
  - THROMBOSIS [None]
  - DEEP VEIN THROMBOSIS [None]
  - HEPARIN-INDUCED THROMBOCYTOPENIA [None]
  - POLYCHROMASIA [None]
